FAERS Safety Report 16088033 (Version 2)
Quarter: 2019Q2

REPORT INFORMATION
  Report Type: Spontaneous
  Country: US (occurrence: US)
  Receive Date: 20190319
  Receipt Date: 20190418
  Transmission Date: 20190711
  Serious: No
  Sender: FDA-Public Use
  Company Number: US-GLAXOSMITHKLINE-US2019045350

PATIENT
  Sex: Female
  Weight: 61.22 kg

DRUGS (1)
  1. BENLYSTA [Suspect]
     Active Substance: BELIMUMAB
     Indication: SYSTEMIC LUPUS ERYTHEMATOSUS
     Dosage: UNK
     Route: 058
     Dates: start: 20190311

REACTIONS (3)
  - Accidental underdose [Unknown]
  - Anxiety [Recovered/Resolved]
  - Exposure via skin contact [Recovered/Resolved]
